FAERS Safety Report 7346929-6 (Version None)
Quarter: 2011Q1

REPORT INFORMATION
  Report Type: 
  Country: None (occurrence: None)
  Receive Date: 20110311
  Receipt Date: 20110301
  Transmission Date: 20110831
  Serious: Yes (Death)
  Sender: FDA-Public Use
  Company Number: GB-JNJFOC-20100808301

PATIENT
  Sex: Female
  Weight: 65 kg

DRUGS (4)
  1. METHOTREXATE [Concomitant]
  2. HYDROXYCHLOROQUINE [Concomitant]
  3. REMICADE [Suspect]
     Route: 042
  4. REMICADE [Suspect]
     Indication: RHEUMATOID ARTHRITIS
     Route: 042

REACTIONS (1)
  - HAEMORRHAGIC CEREBRAL INFARCTION [None]
